FAERS Safety Report 11189504 (Version 1)
Quarter: 2015Q2

REPORT INFORMATION
  Report Type: Spontaneous
  Country: CA (occurrence: CA)
  Receive Date: 20150615
  Receipt Date: 20150615
  Transmission Date: 20150821
  Serious: Yes (Other)
  Sender: FDA-Public Use
  Company Number: CA-TEVA-570350USA

PATIENT
  Age: 17 Year
  Sex: Female

DRUGS (1)
  1. AVIANE 28 DAY [Suspect]
     Active Substance: ETHINYL ESTRADIOL\LEVONORGESTREL
     Indication: ORAL CONTRACEPTION
     Route: 048

REACTIONS (2)
  - Abdominal pain [Unknown]
  - Genital haemorrhage [Unknown]
